FAERS Safety Report 7889527-8 (Version None)
Quarter: 2011Q4

REPORT INFORMATION
  Report Type: 
  Country: None (occurrence: None)
  Receive Date: 20111103
  Receipt Date: 20110601
  Transmission Date: 20120403
  Serious: No
  Sender: FDA-Public Use
  Company Number: US-BRISTOL-MYERS SQUIBB COMPANY-14783674

PATIENT
  Age: 81 Year
  Sex: Female
  Weight: 73 kg

DRUGS (7)
  1. KENALOG-40 [Suspect]
     Indication: MOBILITY DECREASED
     Dates: start: 20090831
  2. FENTANYL-100 [Concomitant]
  3. MULTI-VITAMIN [Concomitant]
  4. ZYRTEC [Concomitant]
  5. CALCIUM CITRATE [Concomitant]
  6. BENICAR [Concomitant]
  7. RESTORIL [Concomitant]

REACTIONS (1)
  - RASH PRURITIC [None]
